FAERS Safety Report 21825573 (Version 2)
Quarter: 2023Q1

REPORT INFORMATION
  Report Type: Report from Study
  Country: PR (occurrence: PR)
  Receive Date: 20230105
  Receipt Date: 20230111
  Transmission Date: 20230417
  Serious: Yes (Death, Hospitalization)
  Sender: FDA-Public Use
  Company Number: PR-ABBVIE-4257948

PATIENT
  Sex: Male
  Weight: 65 kg

DRUGS (1)
  1. VENCLEXTA [Suspect]
     Active Substance: VENETOCLAX
     Indication: Acute myeloid leukaemia
     Route: 048
     Dates: start: 20220110

REACTIONS (3)
  - Platelet count decreased [Fatal]
  - Chronic obstructive pulmonary disease [Fatal]
  - Pneumothorax [Fatal]

NARRATIVE: CASE EVENT DATE: 20230101
